FAERS Safety Report 18209606 (Version 4)
Quarter: 2020Q4

REPORT INFORMATION
  Report Type: Spontaneous
  Country: US (occurrence: US)
  Receive Date: 20200828
  Receipt Date: 20201012
  Transmission Date: 20210113
  Serious: No
  Sender: FDA-Public Use
  Company Number: US-PFIZER INC-2016508452

PATIENT
  Age: 6 Year
  Sex: Male

DRUGS (2)
  1. BENEFIX [Suspect]
     Active Substance: COAGULATION FACTOR IX RECOMBINANT HUMAN\ISOPROPYL ALCOHOL
     Indication: COAGULATION FACTOR IX LEVEL ABNORMAL
  2. BENEFIX [Suspect]
     Active Substance: COAGULATION FACTOR IX RECOMBINANT HUMAN\ISOPROPYL ALCOHOL
     Indication: HAEMORRHAGE
     Dosage: 60 UNITS/KG, 1458 UNITS, FOR INFUSION, +/- 10% OF DOSE ALLOWED, X3 DAYS POST-OPERATIVELY
     Route: 042

REACTIONS (1)
  - Tooth disorder [Unknown]
